FAERS Safety Report 6894448-3 (Version None)
Quarter: 2010Q3

REPORT INFORMATION
  Report Type: 
  Country: None (occurrence: None)
  Receive Date: 20100802
  Receipt Date: 20100722
  Transmission Date: 20110219
  Serious: Yes (Other)
  Sender: FDA-Public Use
  Company Number: US-ALEXION-A201000864

PATIENT
  Sex: Female

DRUGS (6)
  1. SOLIRIS [Suspect]
     Indication: PAROXYSMAL NOCTURNAL HAEMOGLOBINURIA
     Dosage: 900 MG, Q2W
     Route: 042
  2. ALPRAZOLAM [Concomitant]
     Indication: INSOMNIA
     Dosage: 200-300 MG AT HS
     Route: 048
  3. NEXIUM [Concomitant]
     Dosage: UNK
  4. MAGNESIUM OXIDE [Concomitant]
     Dosage: UNK
  5. FOLIC ACID [Concomitant]
  6. ZOLOFT [Concomitant]
     Dosage: UNK

REACTIONS (1)
  - GRAND MAL CONVULSION [None]
